FAERS Safety Report 12713811 (Version 3)
Quarter: 2016Q4

REPORT INFORMATION
  Report Type: Spontaneous
  Country: US (occurrence: US)
  Receive Date: 20160904
  Receipt Date: 20161107
  Transmission Date: 20170207
  Serious: Yes (Hospitalization, Other)
  Sender: FDA-Public Use
  Company Number: US-009507513-1608USA008406

PATIENT
  Age: 61 Year
  Sex: Male
  Weight: 60.68 kg

DRUGS (12)
  1. ALEVE [Concomitant]
     Active Substance: NAPROXEN SODIUM
     Route: 048
  2. JANUVIA [Suspect]
     Active Substance: SITAGLIPTIN PHOSPHATE
     Indication: TYPE 2 DIABETES MELLITUS
     Dosage: 100 DF, QD
     Route: 048
     Dates: start: 20151207, end: 20160714
  3. ASPIRIN. [Concomitant]
     Active Substance: ASPIRIN
     Dosage: 81 MG, QD
     Route: 048
  4. ATIVAN [Concomitant]
     Active Substance: LORAZEPAM
     Route: 048
  5. VITAMINS (UNSPECIFIED) [Concomitant]
     Active Substance: VITAMINS
     Route: 048
  6. VITAMIN A [Concomitant]
     Active Substance: VITAMIN A
     Route: 048
  7. XANTHOPHYLL [Concomitant]
     Route: 048
  8. GARLIC. [Concomitant]
     Active Substance: GARLIC
     Route: 048
  9. PROBIOTICS (UNSPECIFIED) [Concomitant]
     Active Substance: PROBIOTICS NOS
     Dosage: 0.5 MG, Q6 PRN
     Route: 048
  10. ACETAMINOPHEN (+) OXYCODONE HYDROCHLORIDE [Concomitant]
     Active Substance: ACETAMINOPHEN\OXYCODONE HYDROCHLORIDE
     Route: 048
  11. POTASSIUM (UNSPECIFIED) [Concomitant]
     Active Substance: POTASSIUM
     Route: 048
  12. MAGNESIUM (UNSPECIFIED) [Concomitant]
     Active Substance: MAGNESIUM
     Route: 048

REACTIONS (4)
  - Abdominal discomfort [Unknown]
  - Abdominal pain [Unknown]
  - Pancreatic mass [Not Recovered/Not Resolved]
  - Pancreatic neoplasm [Unknown]

NARRATIVE: CASE EVENT DATE: 2016
